FAERS Safety Report 8430778-1 (Version None)
Quarter: 2012Q2

REPORT INFORMATION
  Report Type: 
  Country: None (occurrence: None)
  Receive Date: 20120612
  Receipt Date: 20120507
  Transmission Date: 20120825
  Serious: Yes (Hospitalization)
  Sender: FDA-Public Use
  Company Number: NL-MEDIMMUNE-MEDI-0013711

PATIENT
  Age: 677 Day
  Sex: Female
  Weight: 11.1 kg

DRUGS (3)
  1. SYNAGIS [Suspect]
     Indication: BRONCHOPULMONARY DYSPLASIA
     Route: 030
     Dates: start: 20110912, end: 20110912
  2. AMLODIPINE MALEATE [Concomitant]
  3. SYNAGIS [Suspect]
     Route: 030
     Dates: start: 20111010

REACTIONS (3)
  - OXYGEN SATURATION DECREASED [None]
  - NOCTURNAL DYSPNOEA [None]
  - RESPIRATORY TRACT INFECTION [None]
